FAERS Safety Report 23298293 (Version 4)
Quarter: 2024Q1

REPORT INFORMATION
  Report Type: Report from Study
  Country: US (occurrence: US)
  Receive Date: 20231214
  Receipt Date: 20240314
  Transmission Date: 20240410
  Serious: Yes (Death, Hospitalization, Other)
  Sender: FDA-Public Use
  Company Number: US-PFIZER INC-202300434856

PATIENT
  Age: 73 Year
  Sex: Female

DRUGS (1)
  1. IBRANCE [Suspect]
     Active Substance: PALBOCICLIB
     Dosage: D1-21 EVERY 28 DAYS
     Route: 048
     Dates: start: 20231201, end: 20231204

REACTIONS (10)
  - Death [Fatal]
  - Postoperative wound infection [Recovering/Resolving]
  - Urinary tract infection [Unknown]
  - Sepsis [Recovering/Resolving]
  - Bedridden [Not Recovered/Not Resolved]
  - Aphasia [Unknown]
  - Hypotension [Unknown]
  - Confusional state [Not Recovered/Not Resolved]
  - Asthenia [Not Recovered/Not Resolved]
  - Anxiety [Not Recovered/Not Resolved]

NARRATIVE: CASE EVENT DATE: 20231202
